FAERS Safety Report 23224022 (Version 1)
Quarter: 2023Q4

REPORT INFORMATION
  Report Type: Spontaneous
  Country: US (occurrence: US)
  Receive Date: 20231124
  Receipt Date: 20231124
  Transmission Date: 20240109
  Serious: No
  Sender: FDA-Public Use
  Company Number: US-HIKMA PHARMACEUTICALS USA INC.-US-H14001-23-00540

PATIENT
  Sex: Male

DRUGS (5)
  1. BUPIVACAINE [Suspect]
     Active Substance: BUPIVACAINE
     Indication: Spinal pain
     Dosage: 5.77444 MILLIGRAM, QD
     Route: 037
     Dates: start: 20230119
  2. INFUMORPH [Suspect]
     Active Substance: MORPHINE SULFATE
     Indication: Spinal pain
     Dosage: 2.53512 MILLIGRAM, QD
     Route: 037
     Dates: start: 20210909
  3. INFUMORPH [Suspect]
     Active Substance: MORPHINE SULFATE
     Dosage: 2.91615 MILLIGRAM, QD
     Route: 037
     Dates: start: 20210909
  4. INFUMORPH [Suspect]
     Active Substance: MORPHINE SULFATE
     Dosage: 2.53512 MILLIGRAM, QD
     Route: 037
     Dates: start: 20210608
  5. INFUMORPH [Suspect]
     Active Substance: MORPHINE SULFATE
     Dosage: 3.84962 MILLIGRAM, QD
     Route: 037
     Dates: start: 20230119

REACTIONS (1)
  - Product dose omission issue [Recovered/Resolved]
